FAERS Safety Report 6037888-7 (Version None)
Quarter: 2009Q1

REPORT INFORMATION
  Report Type: 
  Country: None (occurrence: None)
  Receive Date: 20090115
  Receipt Date: 20090112
  Transmission Date: 20090719
  Serious: Yes (Other)
  Sender: FDA-Public Use
  Company Number: TR-BRISTOL-MYERS SQUIBB COMPANY-14466668

PATIENT
  Age: 9 Year
  Sex: Male
  Weight: 33 kg

DRUGS (3)
  1. CISPLATIN [Suspect]
     Indication: NASOPHARYNGEAL CANCER
  2. DOCETAXEL [Suspect]
     Indication: NASOPHARYNGEAL CANCER
  3. RADIOTHERAPY [Suspect]
     Indication: NASOPHARYNGEAL CANCER

REACTIONS (3)
  - APPENDICITIS [None]
  - STOMATITIS [None]
  - ULCER [None]
